FAERS Safety Report 10216674 (Version 1)
Quarter: 2014Q2

REPORT INFORMATION
  Report Type: Spontaneous
  Country: IR (occurrence: IR)
  Receive Date: 20140604
  Receipt Date: 20140604
  Transmission Date: 20141212
  Serious: Yes (Death, Hospitalization)
  Sender: FDA-Public Use
  Company Number: PHHY2014IR067617

PATIENT
  Age: 57 Year
  Sex: Male

DRUGS (4)
  1. MYCOPHENOLATE [Suspect]
     Indication: IMMUNOSUPPRESSION
  2. PREDNISOLONE [Suspect]
     Indication: IMMUNOSUPPRESSION
     Dosage: 10 MG, DAILY
  3. AZATHIOPRINE [Suspect]
     Indication: IMMUNOSUPPRESSION
  4. ALBENDAZOLE [Suspect]
     Indication: STRONGYLOIDIASIS
     Dosage: 800 MG, DAILY

REACTIONS (14)
  - Respiratory failure [Fatal]
  - Dyspnoea [Fatal]
  - Productive cough [Fatal]
  - Rales [Fatal]
  - Strongyloidiasis [Unknown]
  - Abdominal pain [Unknown]
  - Diarrhoea [Unknown]
  - Sepsis [Unknown]
  - Pyrexia [Unknown]
  - Hypotension [Unknown]
  - Tachycardia [Unknown]
  - Myasthenia gravis [Unknown]
  - General physical health deterioration [Unknown]
  - Drug ineffective [Unknown]
